FAERS Safety Report 13720394 (Version 1)
Quarter: 2017Q3

REPORT INFORMATION
  Report Type: Spontaneous
  Country: US (occurrence: US)
  Receive Date: 20170705
  Receipt Date: 20170705
  Transmission Date: 20171127
  Serious: No
  Sender: FDA-Public Use
  Company Number: None

PATIENT
  Age: 53 Year
  Sex: Female

DRUGS (1)
  1. CAPECITABINE TAB 500MG [Suspect]
     Active Substance: CAPECITABINE

REACTIONS (6)
  - Fluid retention [None]
  - Dyspnoea [None]
  - Platelet count decreased [None]
  - Movement disorder [None]
  - Therapy cessation [None]
  - Eating disorder [None]

NARRATIVE: CASE EVENT DATE: 20170629
